FAERS Safety Report 7250453-9 (Version None)
Quarter: 2011Q1

REPORT INFORMATION
  Report Type: 
  Country: None (occurrence: None)
  Receive Date: 20110119
  Receipt Date: 20110105
  Transmission Date: 20110831
  Serious: Yes (Hospitalization)
  Sender: FDA-Public Use
  Company Number: DSJ-2011-00376

PATIENT
  Age: 56 Year
  Sex: Female

DRUGS (6)
  1. METFORMIN [Concomitant]
  2. SIMVASTATIN [Concomitant]
  3. LEVOTHYROXINE SODIUM [Concomitant]
  4. BENICAR HCT [Suspect]
     Indication: HYPERTENSION
     Dosage: (40/25 MG (1 IN 1 D), PER ORAL) (80/50 MG (1 IN 1 D), PER ORAL) (40/25 MG (1 IN 1 D), PER ORAL)
     Route: 048
     Dates: start: 20101201, end: 20101201
  5. BENICAR HCT [Suspect]
     Indication: HYPERTENSION
     Dosage: (40/25 MG (1 IN 1 D), PER ORAL) (80/50 MG (1 IN 1 D), PER ORAL) (40/25 MG (1 IN 1 D), PER ORAL)
     Route: 048
     Dates: start: 20101001, end: 20101201
  6. BENICAR HCT [Suspect]
     Indication: HYPERTENSION
     Dosage: (40/25 MG (1 IN 1 D), PER ORAL) (80/50 MG (1 IN 1 D), PER ORAL) (40/25 MG (1 IN 1 D), PER ORAL)
     Route: 048
     Dates: start: 20101201

REACTIONS (5)
  - ABDOMINAL PAIN [None]
  - BLOOD PRESSURE SYSTOLIC INCREASED [None]
  - CHOLECYSTECTOMY [None]
  - OVERDOSE [None]
  - DRUG INEFFECTIVE [None]
